FAERS Safety Report 25958509 (Version 1)
Quarter: 2025Q4

REPORT INFORMATION
  Report Type: Spontaneous
  Country: GB (occurrence: GB)
  Receive Date: 20251024
  Receipt Date: 20251024
  Transmission Date: 20260118
  Serious: Yes (Other)
  Sender: ELI LILLY AND COMPANY
  Company Number: GB-MHRA-TPP28785473C5273244YC1760360714484

PATIENT
  Age: 56 Year
  Sex: Female
  Weight: 88 kg

DRUGS (1)
  1. TIRZEPATIDE [Suspect]
     Active Substance: TIRZEPATIDE
     Indication: Ill-defined disorder
     Dosage: 5 MG, UNKNOWN
     Route: 065
     Dates: start: 20250804

REACTIONS (3)
  - Erythema multiforme [Recovered/Resolved]
  - Skin reaction [Unknown]
  - Injection site swelling [Unknown]
